FAERS Safety Report 5953394-X (Version None)
Quarter: 2008Q4

REPORT INFORMATION
  Report Type: 
  Country: None (occurrence: None)
  Receive Date: 20081114
  Receipt Date: 20081110
  Transmission Date: 20090506
  Serious: Yes (Other)
  Sender: FDA-Public Use
  Company Number: GB-MERCK-0811GBR00030

PATIENT
  Age: 75 Year
  Sex: Female

DRUGS (11)
  1. ZOCOR [Suspect]
     Route: 048
     Dates: start: 20081023, end: 20081029
  2. AMISULPRIDE [Concomitant]
     Route: 065
  3. ASPIRIN [Concomitant]
     Route: 065
  4. ACETAMINOPHEN AND CODEINE PHOSPHATE [Concomitant]
     Route: 065
  5. PRINIVIL [Concomitant]
     Route: 065
  6. LORAZEPAM [Concomitant]
     Route: 065
  7. MEBEVERINE HYDROCHLORIDE [Concomitant]
     Route: 065
  8. METFORMIN [Concomitant]
     Route: 065
  9. PAROXETINE [Concomitant]
     Route: 065
  10. VALPROATE SODIUM [Concomitant]
     Route: 065
  11. ZOPICLONE [Concomitant]
     Route: 065

REACTIONS (3)
  - AGITATION [None]
  - CONDITION AGGRAVATED [None]
  - CONFUSIONAL STATE [None]
